FAERS Safety Report 4507444-8 (Version None)
Quarter: 2004Q4

REPORT INFORMATION
  Report Type: 
  Country: None (occurrence: None)
  Receive Date: 20041118
  Receipt Date: 20041105
  Transmission Date: 20050328
  Serious: Yes (Hospitalization, Other)
  Sender: FDA-Public Use
  Company Number: HQWYE275025NOV03

PATIENT
  Age: 50 Year
  Sex: Female
  Weight: 71.2 kg

DRUGS (9)
  1. RAPAMUNE [Suspect]
     Indication: PROPHYLAXIS AGAINST TRANSPLANT REJECTION
     Dosage: 5 MG 1X PER 1 DAY, ORAL
     Route: 048
     Dates: start: 20031112, end: 20031113
  2. CELLCEPT [Concomitant]
  3. PROGRAF [Concomitant]
  4. PREDNISONE [Concomitant]
  5. VALCYTE [Concomitant]
  6. PROTONIX [Concomitant]
  7. SEPTRA (SULFAMETHOXAZOLE/TRIMETHROPRIM) [Concomitant]
  8. NYSTATIN [Concomitant]
  9. TUMS (CALCIUM CARBONATE/MAGNESIUM CARBONATE/MAGNESIUM TRISILICATE) [Concomitant]

REACTIONS (7)
  - ARTERIOVENOUS GRAFT SITE COMPLICATION [None]
  - CHILLS [None]
  - HAEMATOCRIT DECREASED [None]
  - LYMPHOCYTE STIMULATION TEST POSITIVE [None]
  - OEDEMA PERIPHERAL [None]
  - PYREXIA [None]
  - SEROMA [None]
